FAERS Safety Report 15417052 (Version 1)
Quarter: 2018Q3

REPORT INFORMATION
  Report Type: Spontaneous
  Country: US (occurrence: US)
  Receive Date: 20180924
  Receipt Date: 20180924
  Transmission Date: 20181010
  Serious: Yes (Hospitalization, Other)
  Sender: FDA-Public Use
  Company Number: US-ZYDUS-027024

PATIENT
  Age: 47 Year
  Sex: Male

DRUGS (2)
  1. LISINOPRIL. [Suspect]
     Active Substance: LISINOPRIL
     Indication: PRODUCT USED FOR UNKNOWN INDICATION
     Dosage: APPROXIMATELY 200 MG
     Route: 065
  2. AMLODIPINE [Suspect]
     Active Substance: AMLODIPINE BESYLATE
     Indication: PRODUCT USED FOR UNKNOWN INDICATION
     Dosage: APPROXIMATELY 400 MG
     Route: 065

REACTIONS (15)
  - Intentional overdose [Unknown]
  - Acute kidney injury [Recovering/Resolving]
  - Tachypnoea [Recovering/Resolving]
  - Fluid overload [Recovering/Resolving]
  - Depressed level of consciousness [Recovering/Resolving]
  - Lactic acidosis [Recovering/Resolving]
  - Pulmonary oedema [Recovering/Resolving]
  - Suicide attempt [Unknown]
  - Dyspnoea [Recovering/Resolving]
  - Hypoxia [Recovering/Resolving]
  - Pulmonary function test decreased [Recovering/Resolving]
  - Right ventricular dilatation [Recovering/Resolving]
  - Vomiting [Recovering/Resolving]
  - Leukocytosis [Recovering/Resolving]
  - Hypotension [Recovering/Resolving]
